FAERS Safety Report 16754405 (Version 2)
Quarter: 2019Q3

REPORT INFORMATION
  Report Type: Spontaneous
  Country: BR (occurrence: BR)
  Receive Date: 20190829
  Receipt Date: 20190913
  Transmission Date: 20191005
  Serious: Yes (Other)
  Sender: FDA-Public Use
  Company Number: BR-EMD SERONO-9112856

PATIENT
  Age: 36 Year
  Sex: Female

DRUGS (3)
  1. GLIFAGE [Suspect]
     Active Substance: METFORMIN HYDROCHLORIDE
     Indication: GLUCOSE TOLERANCE IMPAIRED
     Dosage: THERAPY START DATE: 4 YEARS AGO
     Route: 048
     Dates: start: 2015
  2. PURAN [Concomitant]
     Active Substance: LEVOTHYROXINE SODIUM
     Indication: PRODUCT USED FOR UNKNOWN INDICATION
  3. CITONEURIN [Suspect]
     Active Substance: CYANOCOBALAMIN\PYRIDOXINE HYDROCHLORIDE\THIAMINE
     Indication: BACK PAIN
     Dosage: POSOLOGY: ONE SUGAR COATED A DAY?THERAPY START DATE: 2019
     Route: 048

REACTIONS (6)
  - Maternal exposure during pregnancy [Recovered/Resolved]
  - Amniotic fluid volume decreased [Recovered/Resolved]
  - Back pain [Unknown]
  - Live birth [Recovered/Resolved]
  - Off label use [Unknown]
  - Breast feeding [Unknown]

NARRATIVE: CASE EVENT DATE: 2018
